FAERS Safety Report 11172277 (Version 1)
Quarter: 2015Q2

REPORT INFORMATION
  Report Type: Spontaneous
  Country: IE (occurrence: DE)
  Receive Date: 20150608
  Receipt Date: 20150608
  Transmission Date: 20150821
  Serious: Yes (Other)
  Sender: FDA-Public Use
  Company Number: IE-MYLANLABS-2015M1018992

PATIENT

DRUGS (6)
  1. FONDAPARINUX [Suspect]
     Active Substance: FONDAPARINUX
     Dosage: 7.5 MG, ONCE
     Dates: start: 201411, end: 201411
  2. FONDAPARINUX [Suspect]
     Active Substance: FONDAPARINUX
     Dosage: 2.5 MG, AM
     Route: 058
     Dates: start: 20141024
  3. EUTHYROX [Concomitant]
     Active Substance: LEVOTHYROXINE SODIUM
     Dosage: 50 MG, UNK
  4. IBUPROFEN. [Concomitant]
     Active Substance: IBUPROFEN
     Dosage: 3 DOSAGE FORMS (600MG)
  5. FONDAPARINUX [Suspect]
     Active Substance: FONDAPARINUX
     Dosage: 1 WEEK
     Dates: start: 2014
  6. NOVALGIN [Concomitant]
     Active Substance: METAMIZOLE SODIUM
     Dosage: 8 DOSAGE FORMS (500 MG)

REACTIONS (11)
  - Rash [Unknown]
  - Fibrin D dimer increased [Unknown]
  - Dyspnoea [Unknown]
  - Heart rate increased [Unknown]
  - Extra dose administered [Unknown]
  - Dizziness [Unknown]
  - Productive cough [Unknown]
  - Nausea [Unknown]
  - Blood bilirubin increased [Unknown]
  - Haematoma [Unknown]
  - Weight decreased [Unknown]
